FAERS Safety Report 9726308 (Version 1)
Quarter: 2013Q4

REPORT INFORMATION
  Report Type: Spontaneous
  Country: NL (occurrence: NL)
  Receive Date: 20131203
  Receipt Date: 20131203
  Transmission Date: 20140711
  Serious: Yes (Other)
  Sender: FDA-Public Use
  Company Number: NL-TEVA-446110ISR

PATIENT
  Sex: Female

DRUGS (7)
  1. ALENDRONIC ACID [Suspect]
     Indication: OSTEOPOROSIS
     Dosage: 10 MILLIGRAM DAILY; ALSO RECEIVED 70MG ONCE A WEEK
     Route: 065
  2. ALENDRONIC ACID [Suspect]
     Indication: OSTEOPOROSIS
     Route: 065
  3. OMEPRAZOLE [Suspect]
     Route: 065
  4. CALCIUM, COLECALCIFEROL [Concomitant]
     Route: 065
  5. ASPIRIN [Concomitant]
     Route: 065
  6. EZETIMIBE [Concomitant]
     Route: 065
  7. PRAVASTATIN [Concomitant]
     Route: 065

REACTIONS (5)
  - Vision blurred [Unknown]
  - Joint swelling [Unknown]
  - Rash [Unknown]
  - Facial pain [Unknown]
  - Tooth injury [Unknown]
